FAERS Safety Report 7078527-6 (Version None)
Quarter: 2010Q4

REPORT INFORMATION
  Report Type: 
  Country: None (occurrence: None)
  Receive Date: 20101102
  Receipt Date: 20101020
  Transmission Date: 20110411
  Serious: Yes (Hospitalization)
  Sender: FDA-Public Use
  Company Number: DE-SANOFI-AVENTIS-2010SA045714

PATIENT
  Age: 66 Year
  Sex: Female
  Weight: 65 kg

DRUGS (13)
  1. DOCETAXEL [Suspect]
     Indication: BREAST CANCER
     Route: 041
     Dates: start: 20100528, end: 20100528
  2. DOCETAXEL [Suspect]
     Route: 041
     Dates: start: 20100709, end: 20100709
  3. CYCLOPHOSPHAMIDE [Suspect]
     Indication: BREAST CANCER
     Route: 041
     Dates: start: 20100528, end: 20100528
  4. CYCLOPHOSPHAMIDE [Suspect]
     Route: 041
     Dates: start: 20100709, end: 20100709
  5. BISOHEXAL [Concomitant]
     Route: 048
     Dates: start: 20040101
  6. ENALAPRIL MALEATE [Concomitant]
     Dosage: DOSE: 5/12.5 MG
     Route: 048
     Dates: start: 20040101
  7. UROMITEXAN [Concomitant]
     Indication: PROPHYLAXIS
     Route: 042
     Dates: start: 20100709, end: 20100709
  8. UROMITEXAN [Concomitant]
     Route: 048
     Dates: start: 20100709, end: 20100709
  9. FORTECORTIN [Concomitant]
     Route: 042
     Dates: start: 20100709, end: 20100709
  10. FORTECORTIN [Concomitant]
     Route: 048
     Dates: start: 20100709, end: 20100709
  11. NEULASTA [Concomitant]
     Indication: PROPHYLAXIS
     Route: 058
     Dates: start: 20100709, end: 20100709
  12. NEULASTA [Concomitant]
     Route: 058
     Dates: start: 20100730, end: 20100730
  13. CLEXANE [Concomitant]
     Indication: THROMBOSIS PROPHYLAXIS
     Route: 058
     Dates: start: 20100802

REACTIONS (3)
  - DYSPNOEA EXERTIONAL [None]
  - POLYNEUROPATHY [None]
  - TREMOR [None]
